FAERS Safety Report 5862521-4 (Version None)
Quarter: 2008Q3

REPORT INFORMATION
  Report Type: 
  Country: None (occurrence: None)
  Receive Date: 20080827
  Receipt Date: 20080827
  Transmission Date: 20090109
  Serious: Yes (Other)
  Sender: FDA-Public Use
  Company Number: None

PATIENT
  Age: 27 Year
  Sex: Female
  Weight: 72.5755 kg

DRUGS (4)
  1. NUVARING [Suspect]
     Indication: AMENORRHOEA
     Dosage: 1 ONCE A MONTH  INTRACERVICAL
     Route: 019
     Dates: start: 20080501, end: 20080522
  2. NUVARING [Suspect]
     Indication: PREGNANCY TEST NEGATIVE
     Dosage: 1 ONCE A MONTH  INTRACERVICAL
     Route: 019
     Dates: start: 20080501, end: 20080522
  3. NUVARING [Suspect]
     Indication: AMENORRHOEA
     Dosage: 1 ONCE A MONTH  INTRACERVICAL
     Route: 019
     Dates: start: 20080623, end: 20080718
  4. NUVARING [Suspect]
     Indication: PREGNANCY TEST NEGATIVE
     Dosage: 1 ONCE A MONTH  INTRACERVICAL
     Route: 019
     Dates: start: 20080623, end: 20080718

REACTIONS (4)
  - DRUG EXPOSURE DURING PREGNANCY [None]
  - HYPOMENORRHOEA [None]
  - INTRA-UTERINE CONTRACEPTIVE DEVICE EXPELLED [None]
  - PREGNANCY WITH CONTRACEPTIVE DEVICE [None]
